FAERS Safety Report 5633775-4 (Version None)
Quarter: 2008Q1

REPORT INFORMATION
  Report Type: 
  Country: None (occurrence: None)
  Receive Date: 20080219
  Receipt Date: 20080205
  Transmission Date: 20080703
  Serious: No
  Sender: FDA-Public Use
  Company Number: 000090

PATIENT
  Sex: Male

DRUGS (7)
  1. PLETAL [Suspect]
     Indication: ARTERIOSCLEROSIS OBLITERANS
     Dosage: 100 MG, BID ORAL
     Route: 048
  2. FRAGMIN [Suspect]
     Indication: DISSEMINATED INTRAVASCULAR COAGULATION
     Dosage: 4000 IU, QD
     Dates: start: 20070518
  3. ZYVOX [Suspect]
     Dates: start: 20070519
  4. SAXIZON (HYDROCORTISONE SODIUM SUCCINATE) INJECTION [Suspect]
     Indication: SEPTIC SHOCK
     Dosage: 250 MG, QD;
     Dates: start: 20070519
  5. SULPERAZON (SULBACTAM SODIUM/CEFOPERAZONE SODIUM) INJECTION [Concomitant]
  6. MEROPEN (MEROPENEM TRIHYDRATE) INJECTION [Concomitant]
  7. DALACIN-S (CLINDAMYCIN PHOSPHATE) INJECTION [Concomitant]

REACTIONS (5)
  - DIABETES MELLITUS [None]
  - GASTROINTESTINAL HAEMORRHAGE [None]
  - PLATELET COUNT DECREASED [None]
  - PNEUMONIA [None]
  - SUPERINFECTION [None]
